FAERS Safety Report 14517287 (Version 1)
Quarter: 2018Q1

REPORT INFORMATION
  Report Type: Spontaneous
  Country: US (occurrence: US)
  Receive Date: 20180209
  Receipt Date: 20180209
  Transmission Date: 20180509
  Serious: No
  Sender: FDA-Public Use
  Company Number: None

PATIENT
  Age: 70 Year
  Sex: Female

DRUGS (1)
  1. MYCOPHENOLATE MOF TAB 500MG [Suspect]
     Active Substance: MYCOPHENOLATE MOFETIL
     Route: 048

REACTIONS (5)
  - Pain in jaw [None]
  - Economic problem [None]
  - Vulvovaginal pain [None]
  - Drug dose omission [None]
  - Gingival pain [None]

NARRATIVE: CASE EVENT DATE: 20180208
